FAERS Safety Report 23607059 (Version 2)
Quarter: 2024Q1

REPORT INFORMATION
  Report Type: Spontaneous
  Country: RO (occurrence: None)
  Receive Date: 20240307
  Receipt Date: 20240328
  Transmission Date: 20240410
  Serious: Yes (Death)
  Sender: FDA-Public Use
  Company Number: 2024A056446

PATIENT
  Age: 28427 Day
  Sex: Male
  Weight: 70 kg

DRUGS (5)
  1. ONDEXXYA [Suspect]
     Active Substance: ANDEXANET ALFA
     Dosage: UNKNOWN
     Route: 042
  2. ELIQUIS [Concomitant]
     Active Substance: APIXABAN
     Indication: Atrial fibrillation
     Route: 048
     Dates: end: 20230727
  3. INDAPAMIDE\PERINDOPRIL ARGININE [Concomitant]
     Active Substance: INDAPAMIDE\PERINDOPRIL ARGININE
     Indication: Hypertension
     Route: 048
     Dates: end: 20230727
  4. ATORVASTATIN CALCIUM [Concomitant]
     Active Substance: ATORVASTATIN CALCIUM
     Indication: Hypercholesterolaemia
     Route: 048
     Dates: end: 20230727
  5. LERIDIP [Concomitant]
     Indication: Hypertension
     Route: 048
     Dates: end: 20230727

REACTIONS (1)
  - Pneumonia [Fatal]

NARRATIVE: CASE EVENT DATE: 20230805
